FAERS Safety Report 9809100 (Version 1)
Quarter: 2014Q1

REPORT INFORMATION
  Report Type: Spontaneous
  Country: DE (occurrence: DE)
  Receive Date: 20140110
  Receipt Date: 20140110
  Transmission Date: 20141002
  Serious: Yes (Other)
  Sender: FDA-Public Use
  Company Number: PHHY2013DE153360

PATIENT
  Age: 61 Year
  Sex: Male
  Weight: 110 kg

DRUGS (5)
  1. HYDROCHLOROTHIAZIDE [Suspect]
     Indication: HYPERTENSION
     Dosage: 25 MG, QD (1-0-0)
  2. BISOPROLOL [Suspect]
     Indication: HYPERTENSION
     Dosage: 5 MG, (1/2-0-1/2)
  3. AMLODIPINE [Suspect]
     Indication: HYPERTENSION
     Dosage: 10 MG, QD (0-0-1)
  4. URAPIDIL [Suspect]
     Indication: HYPERTENSION
     Dosage: 90 MG, 1-0-1
  5. MOXONIDINE [Suspect]
     Indication: HYPERTENSION
     Dosage: 0.3 MG, 1-0-1

REACTIONS (2)
  - Hypertension [Unknown]
  - Drug resistance [Unknown]
